FAERS Safety Report 19286986 (Version 9)
Quarter: 2021Q3

REPORT INFORMATION
  Report Type: Report from Study
  Country: AU (occurrence: AU)
  Receive Date: 20210521
  Receipt Date: 20210823
  Transmission Date: 20211014
  Serious: Yes (Hospitalization)
  Sender: FDA-Public Use
  Company Number: AU-BIOGEN-2020BI00956660

PATIENT
  Age: 42 Year
  Sex: Female

DRUGS (1)
  1. TYSABRI [Suspect]
     Active Substance: NATALIZUMAB
     Indication: MULTIPLE SCLEROSIS
     Route: 042
     Dates: start: 20210210

REACTIONS (30)
  - Muscular weakness [Not Recovered/Not Resolved]
  - Asthenia [Recovered/Resolved]
  - Conversion disorder [Not Recovered/Not Resolved]
  - Extensor plantar response [Not Recovered/Not Resolved]
  - Headache [Recovered/Resolved]
  - Pruritus [Unknown]
  - Limb discomfort [Not Recovered/Not Resolved]
  - Feeling hot [Not Recovered/Not Resolved]
  - Central nervous system lesion [Not Recovered/Not Resolved]
  - Respiratory syncytial virus infection [Recovered/Resolved]
  - Emotional distress [Not Recovered/Not Resolved]
  - Mood swings [Not Recovered/Not Resolved]
  - Paraesthesia [Unknown]
  - Blood pressure decreased [Unknown]
  - Oropharyngeal pain [Recovered/Resolved]
  - Urticaria [Recovered/Resolved]
  - Fatigue [Recovered/Resolved]
  - Gait disturbance [Not Recovered/Not Resolved]
  - Mobility decreased [Not Recovered/Not Resolved]
  - Secondary progressive multiple sclerosis [Not Recovered/Not Resolved]
  - Spinal cord compression [Not Recovered/Not Resolved]
  - Eye pain [Not Recovered/Not Resolved]
  - Fall [Recovered/Resolved]
  - Pain in extremity [Not Recovered/Not Resolved]
  - Limb mass [Not Recovered/Not Resolved]
  - Coordination abnormal [Not Recovered/Not Resolved]
  - Hypoaesthesia [Not Recovered/Not Resolved]
  - Photophobia [Not Recovered/Not Resolved]
  - Pain [Not Recovered/Not Resolved]
  - Muscle spasms [Not Recovered/Not Resolved]

NARRATIVE: CASE EVENT DATE: 20210618
